FAERS Safety Report 8213402-2 (Version None)
Quarter: 2012Q1

REPORT INFORMATION
  Report Type: 
  Country: None (occurrence: None)
  Receive Date: 20120315
  Receipt Date: 20120307
  Transmission Date: 20120608
  Serious: Yes (Other)
  Sender: FDA-Public Use
  Company Number: PHHY2012JP017961

PATIENT

DRUGS (8)
  1. NICARDIPINE HCL [Suspect]
     Indication: BLOOD PRESSURE INCREASED
     Route: 064
  2. SUGAMMADEX [Suspect]
     Route: 064
  3. ROCURONIUM BROMIDE [Suspect]
     Route: 064
  4. AOS [Suspect]
     Route: 064
  5. BETAMETHASONE [Suspect]
     Route: 064
  6. PROPOFOL [Suspect]
     Route: 064
  7. NEUPOGEN [Suspect]
     Route: 064
  8. FENTANYL [Suspect]
     Route: 064

REACTIONS (3)
  - PREMATURE BABY [None]
  - FOETAL EXPOSURE DURING PREGNANCY [None]
  - LOW BIRTH WEIGHT BABY [None]
